FAERS Safety Report 4706787-2 (Version None)
Quarter: 2005Q3

REPORT INFORMATION
  Report Type: 
  Country: None (occurrence: None)
  Receive Date: 20050705
  Receipt Date: 20050615
  Transmission Date: 20060218
  Serious: Yes (Death)
  Sender: FDA-Public Use
  Company Number: L05-USA-02220-01

PATIENT
  Age: 54 Year
  Sex: Female

DRUGS (5)
  1. CITALOPRAM [Suspect]
  2. METAXALONE [Suspect]
  3. GABAPENTIN [Suspect]
     Dosage: TABLET
  4. ACETAMINOPHEN [Suspect]
  5. FLURAZEPAM [Suspect]

REACTIONS (5)
  - COMPLETED SUICIDE [None]
  - DRUG ABUSER [None]
  - DRUG TOXICITY [None]
  - INTENTIONAL MISUSE [None]
  - OVERDOSE [None]
